FAERS Safety Report 9822872 (Version 1)
Quarter: 2014Q1

REPORT INFORMATION
  Report Type: Spontaneous
  Country: US (occurrence: US)
  Receive Date: 20140116
  Receipt Date: 20140116
  Transmission Date: 20141002
  Serious: Yes (Other)
  Sender: FDA-Public Use
  Company Number: US-PFIZER INC-2014014430

PATIENT
  Age: 61 Year
  Sex: Male

DRUGS (4)
  1. OXYCODONE HYDROCHLORIDE [Suspect]
     Indication: PAIN
     Dosage: UNK, 5X/DAY
  2. NARDIL [Suspect]
     Indication: DEPRESSION
     Dosage: 75 MG, 1X/DAY
  3. NARDIL [Suspect]
     Dosage: 45 MG, 1X/DAY
  4. METHADONE [Suspect]
     Indication: PAIN
     Dosage: UNK, 1X/DAY

REACTIONS (1)
  - Road traffic accident [Unknown]
